FAERS Safety Report 7708745-2 (Version None)
Quarter: 2011Q3

REPORT INFORMATION
  Report Type: 
  Country: None (occurrence: None)
  Receive Date: 20110825
  Receipt Date: 20110825
  Transmission Date: 20111222
  Serious: No
  Sender: FDA-Public Use
  Company Number: None

PATIENT
  Age: 58 Year
  Sex: Female
  Weight: 79.378 kg

DRUGS (1)
  1. RECLAST [Suspect]
     Indication: OSTEOPOROSIS
     Route: 041
     Dates: start: 20110811, end: 20110811

REACTIONS (10)
  - CHILLS [None]
  - VOMITING [None]
  - ACTIVITIES OF DAILY LIVING IMPAIRED [None]
  - IMPAIRED WORK ABILITY [None]
  - IMPAIRED SELF-CARE [None]
  - MYALGIA [None]
  - PYREXIA [None]
  - NAUSEA [None]
  - MUSCULAR WEAKNESS [None]
  - ADVERSE DRUG REACTION [None]
